FAERS Safety Report 6982763-4 (Version None)
Quarter: 2010Q3

REPORT INFORMATION
  Report Type: 
  Country: None (occurrence: None)
  Receive Date: 20100914
  Receipt Date: 20100317
  Transmission Date: 20110219
  Serious: No
  Sender: FDA-Public Use
  Company Number: US-PFIZER INC-2010035371

PATIENT
  Sex: Female

DRUGS (2)
  1. LYRICA [Suspect]
     Indication: SCIATICA
     Dosage: 25 MG, UNK
     Route: 048
     Dates: start: 20100317
  2. CYMBALTA [Suspect]
     Dosage: 30 MG, 1X/DAY
     Route: 048
     Dates: start: 20100312

REACTIONS (4)
  - HEART RATE ABNORMAL [None]
  - INSOMNIA [None]
  - NAUSEA [None]
  - PAIN [None]
